FAERS Safety Report 25603848 (Version 4)
Quarter: 2025Q4

REPORT INFORMATION
  Report Type: Spontaneous
  Country: CA (occurrence: CA)
  Receive Date: 20250725
  Receipt Date: 20251019
  Transmission Date: 20260118
  Serious: Yes (Hospitalization)
  Sender: CELLTRION
  Company Number: CA-CELLTRION INC.-2025CA020224

PATIENT

DRUGS (6)
  1. INFLIXIMAB [Suspect]
     Active Substance: INFLIXIMAB
     Indication: Crohn^s disease
     Dosage: 400 MG EVERY 4 WEEKS (MAINTENANCE)
     Route: 042
     Dates: start: 20250620
  2. INFLIXIMAB [Suspect]
     Active Substance: INFLIXIMAB
     Dosage: RE INDUCTION 400MG IV - WEEK 0,2,6
     Route: 042
     Dates: start: 20250620
  3. INFLIXIMAB [Suspect]
     Active Substance: INFLIXIMAB
     Dosage: - MAINTENANCE - 400 MG - EVERY 4 WEEKS
     Route: 042
     Dates: start: 20250620
  4. ENTYVIO [Concomitant]
     Active Substance: VEDOLIZUMAB
     Indication: Product used for unknown indication
     Route: 065
  5. PREDNISONE [Concomitant]
     Active Substance: PREDNISONE
     Indication: Product used for unknown indication
     Route: 065
  6. AZATHIOPRINE [Concomitant]
     Active Substance: AZATHIOPRINE
     Indication: Product used for unknown indication
     Route: 065

REACTIONS (3)
  - Condition aggravated [Unknown]
  - Drug level decreased [Unknown]
  - Off label use [Unknown]

NARRATIVE: CASE EVENT DATE: 20250712
